FAERS Safety Report 9920894 (Version 2)
Quarter: 2014Q2

REPORT INFORMATION
  Report Type: Spontaneous
  Country: US (occurrence: US)
  Receive Date: 20140225
  Receipt Date: 20140506
  Transmission Date: 20141212
  Serious: Yes (Other)
  Sender: FDA-Public Use
  Company Number: US-AMGEN-USASP2014012318

PATIENT
  Age: 38 Year
  Sex: Male
  Weight: 78.91 kg

DRUGS (5)
  1. ENBREL [Suspect]
     Indication: ANKYLOSING SPONDYLITIS
     Dosage: 50 MG, QWK
     Route: 058
     Dates: start: 201311
  2. HUMIRA [Suspect]
     Indication: PRODUCT USED FOR UNKNOWN INDICATION
     Dosage: UNK
     Route: 065
  3. REMICAID [Suspect]
     Indication: PRODUCT USED FOR UNKNOWN INDICATION
     Dosage: UNK, SEVERAL YEARS
     Route: 065
  4. SIMPONI [Suspect]
     Indication: PRODUCT USED FOR UNKNOWN INDICATION
     Dosage: UNK, APPROXIMATELY 2 YEARS
     Route: 065
  5. SULFASALAZINE [Concomitant]
     Dosage: UNK LESS THAN A YEAR

REACTIONS (13)
  - Ankylosing spondylitis [Recovered/Resolved]
  - Tremor [Not Recovered/Not Resolved]
  - Cough [Recovered/Resolved]
  - Secretion discharge [Recovered/Resolved]
  - Nausea [Recovered/Resolved]
  - Ill-defined disorder [Recovered/Resolved]
  - Staphylococcal skin infection [Recovered/Resolved]
  - Infection [Unknown]
  - Influenza [Unknown]
  - Nasopharyngitis [Unknown]
  - Bronchitis [Unknown]
  - Viral infection [Unknown]
  - Upper respiratory tract infection [Unknown]
